FAERS Safety Report 17994182 (Version 2)
Quarter: 2020Q3

REPORT INFORMATION
  Report Type: Spontaneous
  Country: ES (occurrence: ES)
  Receive Date: 20200708
  Receipt Date: 20200720
  Transmission Date: 20201103
  Serious: Yes (Hospitalization, Other)
  Sender: FDA-Public Use
  Company Number: NVSC2020ES146649

PATIENT
  Age: 66 Year
  Sex: Female
  Weight: 75 kg

DRUGS (64)
  1. TACROLIMUS. [Suspect]
     Active Substance: TACROLIMUS
     Dosage: 6 MG, ONCE DAILY (DOSE INCREASED)
     Route: 048
  2. TACROLIMUS. [Suspect]
     Active Substance: TACROLIMUS
     Dosage: 5 MG, QD
     Route: 065
  3. URSOBILANE [Concomitant]
     Dosage: UNK UNK, THRICE DAILY
     Route: 065
  4. ALPROSTADIL. [Concomitant]
     Active Substance: ALPROSTADIL
     Dosage: 500MG/ 500ML G5% PERFUSION ICU 10MCG/HOUR
     Route: 042
  5. FUROSEMIDE. [Concomitant]
     Active Substance: FUROSEMIDE
     Dosage: SF PERFUSION ICU 30MG/HOUR. PERFUSION PENDING CONTINUOUS INTRAVENOUS PERFUSION
     Route: 042
  6. RISEDRONIC ACID [Concomitant]
     Active Substance: RISEDRONIC ACID
     Indication: PRODUCT USED FOR UNKNOWN INDICATION
     Dosage: UNK UNK, QW
     Route: 065
  7. ENALAPRIL [Concomitant]
     Active Substance: ENALAPRIL
     Indication: PRODUCT USED FOR UNKNOWN INDICATION
     Dosage: 10 MG, ONCE DAILY (AT BREAKFAST)
     Route: 048
  8. MYCOPHENOLATE MOFETIL. [Concomitant]
     Active Substance: MYCOPHENOLATE MOFETIL
     Indication: PRODUCT USED FOR UNKNOWN INDICATION
     Dosage: 1000 MG, TWICE DAILY (BEFORE BREAKFAST AND DINNER)
     Route: 048
  9. AMOXICILLIN + CLAVULANIC ACID [Concomitant]
     Active Substance: AMOXICILLIN\CLAVULANIC ACID
     Indication: PRODUCT USED FOR UNKNOWN INDICATION
     Dosage: UNK (2G + 200 MG , 2G ONLY DOSE (20H) INTERMITTENT IV PERFUSION)
     Route: 042
  10. TACROLIMUS. [Suspect]
     Active Substance: TACROLIMUS
     Dosage: 4.5 MG, QD
     Route: 048
     Dates: start: 20180315, end: 20180504
  11. LAMIVUDINE. [Concomitant]
     Active Substance: LAMIVUDINE
     Indication: PRODUCT USED FOR UNKNOWN INDICATION
     Dosage: 100 MG, BREAKFAST (09 HOURS).
     Route: 048
  12. FUROSEMIDE. [Concomitant]
     Active Substance: FUROSEMIDE
     Dosage: SF PERFUSION ICU 2.5 MG/HOUR. PERFUSION PENDING CONTINUOUS INTRAVENOUS PERFUSION
     Route: 042
  13. PREDNISONE. [Concomitant]
     Active Substance: PREDNISONE
     Indication: PRODUCT USED FOR UNKNOWN INDICATION
     Dosage: 20 MG, ONCE DAILY (PER 24 HOURS)
     Route: 065
  14. NISTATIN [Concomitant]
     Active Substance: NYSTATIN
     Indication: PRODUCT USED FOR UNKNOWN INDICATION
     Dosage: 5 ML (1.000.0000 IU/10ML), THRICE DAILY (BREAKFAST?LUNCH?DINNER) (10?14?21 HOURS
     Route: 048
     Dates: end: 20180123
  15. OMEPRAZOL [Concomitant]
     Active Substance: OMEPRAZOLE
     Indication: PRODUCT USED FOR UNKNOWN INDICATION
     Dosage: 40 MG, Q12H
     Route: 042
     Dates: end: 20180123
  16. TACROLIMUS. [Suspect]
     Active Substance: TACROLIMUS
     Dosage: 6 MG, ONCE DAILY (EACH 24 HOURS)
     Route: 048
  17. SUMIAL [Concomitant]
     Active Substance: PROPRANOLOL HYDROCHLORIDE
     Dosage: 40 UNK, TWICE DAILY
     Route: 065
  18. ALPROSTADIL. [Concomitant]
     Active Substance: ALPROSTADIL
     Dosage: 15 ?G, UNKNOWN FREQ.
     Route: 042
     Dates: end: 20180114
  19. NOREPINEPHRINE. [Concomitant]
     Active Substance: NOREPINEPHRINE
     Indication: PRODUCT USED FOR UNKNOWN INDICATION
     Dosage: 10MG/50 ML G5% (DOUBLE) PERFUSION ICU 0,02 MCG/MIN/KG
     Route: 042
  20. LORAZEPAM. [Concomitant]
     Active Substance: LORAZEPAM
     Indication: PRODUCT USED FOR UNKNOWN INDICATION
     Dosage: 1 MG, ONCE DAILY (NIGHT)
     Route: 048
  21. COTRIMOXAZOL [Concomitant]
     Active Substance: SULFAMETHOXAZOLE\TRIMETHOPRIM
     Dosage: UNK UNK, UNKNOWN FREQ.
     Route: 048
  22. CHLORHEXIDINE [Concomitant]
     Active Substance: CHLORHEXIDINE
     Indication: PRODUCT USED FOR UNKNOWN INDICATION
     Dosage: 0.12% SACHETS 12ML, 12 ML EACH 12HOURS ORAL RINSE
     Route: 048
     Dates: end: 20180123
  23. PREDNISONE. [Concomitant]
     Active Substance: PREDNISONE
     Dosage: 15 MG, UNKNOWN FREQ.
     Route: 065
  24. AMOXICILLIN + CLAVULANIC ACID [Concomitant]
     Active Substance: AMOXICILLIN\CLAVULANIC ACID
     Dosage: 2G + 200 MG , 2G ONLY DOSE (20H) INTERMITTENT IV PERFUSION
     Route: 042
  25. TACROLIMUS. [Suspect]
     Active Substance: TACROLIMUS
     Indication: IMMUNOSUPPRESSION
     Dosage: 4 MG, QD
     Route: 048
     Dates: start: 20180115, end: 20180115
  26. TACROLIMUS. [Suspect]
     Active Substance: TACROLIMUS
     Dosage: 4.4 MG, QD
     Route: 065
  27. TACROLIMUS. [Suspect]
     Active Substance: TACROLIMUS
     Dosage: 6 MG, QD
     Route: 048
     Dates: start: 20180210, end: 20180221
  28. TACROLIMUS. [Suspect]
     Active Substance: TACROLIMUS
     Dosage: 3.5 MG, QD
     Route: 048
     Dates: start: 20180505, end: 20180606
  29. TACROLIMUS. [Suspect]
     Active Substance: TACROLIMUS
     Dosage: 7 MG, QD
     Route: 048
     Dates: start: 20180125, end: 20180209
  30. MORPHINE [Concomitant]
     Active Substance: MORPHINE
     Dosage: 3 MG, AS NEEDED (SLOW INTRAVENOUS)
     Route: 042
  31. METOCLOPRAMIDE. [Concomitant]
     Active Substance: METOCLOPRAMIDE
     Indication: PRODUCT USED FOR UNKNOWN INDICATION
     Dosage: 10 MG, THRICE DAILY (EACH 8 HOURS), SLOW INTRAVENOUS
     Route: 042
     Dates: end: 20180116
  32. COTRIMOXAZOL [Concomitant]
     Active Substance: SULFAMETHOXAZOLE\TRIMETHOPRIM
     Indication: PRODUCT USED FOR UNKNOWN INDICATION
     Dosage: 960 MG, TWICE DAILY (EACH 12 HOURS) (09?21 HOURS)
     Route: 042
  33. TACROLIMUS. [Suspect]
     Active Substance: TACROLIMUS
     Dosage: 1 MG, UNKNOWN
     Route: 065
     Dates: end: 20180123
  34. TACROLIMUS. [Suspect]
     Active Substance: TACROLIMUS
     Dosage: 8 MG, QD
     Route: 048
     Dates: start: 20180124, end: 20180124
  35. STILNOX [Concomitant]
     Active Substance: ZOLPIDEM TARTRATE
     Dosage: UNK UNK, UNKNOWN FREQ.
     Route: 065
  36. METAMIZOLE [Concomitant]
     Active Substance: METAMIZOLE
     Dosage: 2 G, UNKNOWN FREQ. (2G/5 ML)
     Route: 042
     Dates: end: 20180120
  37. FENTANYL. [Concomitant]
     Active Substance: FENTANYL
     Dosage: UNK UNK, UNKNOWN FREQ.(900 MCG/50 ML)  (1 MCG/HOUR/KG)
     Route: 042
     Dates: end: 20180121
  38. MORPHINE [Concomitant]
     Active Substance: MORPHINE
     Dosage: 2 MG, UNKNOWN FREQ.
     Route: 065
     Dates: end: 20200113
  39. FUROSEMIDE. [Concomitant]
     Active Substance: FUROSEMIDE
     Indication: PRODUCT USED FOR UNKNOWN INDICATION
     Dosage: 10 MG, EACH 6 HOUR (ICU), INTRAVENOUS SLOW
     Route: 042
     Dates: end: 20180112
  40. FUROSEMIDE. [Concomitant]
     Active Substance: FUROSEMIDE
     Dosage: SF PERFUSION ICU 5 MG/HOUR. PERFUSION PENDING CONTINUOUS INTRAVENOUS PERFUSION
     Route: 042
  41. FUROSEMIDE. [Concomitant]
     Active Substance: FUROSEMIDE
     Dosage: SF PERFUSION ICU 2 MG/HOUR. PERFUSION PENDING CONTINUOUS INTRAVENOUS PERFUSION
     Route: 042
     Dates: end: 20180117
  42. TACROLIMUS. [Suspect]
     Active Substance: TACROLIMUS
     Dosage: 3 MG, ONCE DAILY (BEFORE DINNER) (07?19 HOURS)
     Route: 048
     Dates: end: 20180115
  43. TACROLIMUS. [Suspect]
     Active Substance: TACROLIMUS
     Dosage: 3.5 MG, QD
     Route: 048
     Dates: start: 20180714, end: 20181015
  44. TACROLIMUS. [Suspect]
     Active Substance: TACROLIMUS
     Dosage: UNK
     Route: 048
     Dates: start: 20190117
  45. STILNOX [Concomitant]
     Active Substance: ZOLPIDEM TARTRATE
     Indication: PRODUCT USED FOR UNKNOWN INDICATION
     Dosage: UNK UNK, UNKNOWN FREQ
     Route: 065
  46. SUMIAL [Concomitant]
     Active Substance: PROPRANOLOL HYDROCHLORIDE
     Indication: PRODUCT USED FOR UNKNOWN INDICATION
     Dosage: 40 UNK, BID
     Route: 065
  47. ALPROSTADIL. [Concomitant]
     Active Substance: ALPROSTADIL
     Indication: PRODUCT USED FOR UNKNOWN INDICATION
     Dosage: 20 ?G, UNKNOWN FREQ.
     Route: 042
  48. RISEDRONIC ACID [Concomitant]
     Active Substance: RISEDRONIC ACID
     Dosage: UNK UNK, ONCE WEEKLY
     Route: 065
  49. COTRIMOXAZOL [Concomitant]
     Active Substance: SULFAMETHOXAZOLE\TRIMETHOPRIM
     Dosage: UNK (MONDAY, WENDSDAY AND FRIDAY (09 HOURS))
     Route: 065
     Dates: end: 20180112
  50. FENTANYL. [Concomitant]
     Active Substance: FENTANYL
     Indication: PRODUCT USED FOR UNKNOWN INDICATION
     Dosage: UNK UNK, UNKNOWN FREQ .(900 MCG/50 ML)  (1 MCG/HOUR/KG)
     Route: 042
     Dates: end: 20180121
  51. PARACETAMOL [Concomitant]
     Active Substance: ACETAMINOPHEN
     Indication: PRODUCT USED FOR UNKNOWN INDICATION
     Dosage: 1000 MG, THRICE DAILY (EACH 8 HOURS), INTRAVENOUS INTERMITENT PERFUSION
     Route: 042
     Dates: end: 20180126
  52. TACROLIMUS. [Suspect]
     Active Substance: TACROLIMUS
     Dosage: 5 MG, QD
     Route: 048
     Dates: start: 20180222, end: 20180314
  53. TACROLIMUS. [Suspect]
     Active Substance: TACROLIMUS
     Dosage: 3 MG, QD
     Route: 048
     Dates: start: 20181016, end: 20190116
  54. TACROLIMUS. [Suspect]
     Active Substance: TACROLIMUS
     Dosage: 6 MG, QD
     Route: 048
     Dates: start: 20180116, end: 20180123
  55. TACROLIMUS. [Suspect]
     Active Substance: TACROLIMUS
     Dosage: 3 MG, QD
     Route: 048
     Dates: start: 20180607, end: 20180713
  56. URSOBILANE [Concomitant]
     Indication: PRODUCT USED FOR UNKNOWN INDICATION
     Dosage: UNK, TID (THRICE DAILY)
     Route: 065
  57. METAMIZOLE [Concomitant]
     Active Substance: METAMIZOLE
     Indication: PRODUCT USED FOR UNKNOWN INDICATION
     Dosage: 2 G, UNKNOWN FREQ. (2G/5 ML)
     Route: 042
     Dates: end: 20180114
  58. METAMIZOLE [Concomitant]
     Active Substance: METAMIZOLE
     Dosage: 2 G, UNKNOWN FREQ. (2G/5 ML)
     Route: 042
     Dates: end: 20180114
  59. MORPHINE [Concomitant]
     Active Substance: MORPHINE
     Indication: PRODUCT USED FOR UNKNOWN INDICATION
     Dosage: 2 MG, UNKNOWN FREQ.
     Route: 065
     Dates: end: 20200120
  60. MYCOPHENOLATE [Concomitant]
     Active Substance: MYCOPHENOLIC ACID
     Indication: PRODUCT USED FOR UNKNOWN INDICATION
     Dosage: 500 MG, Q12H
     Route: 065
  61. BEMIPARIN [Concomitant]
     Active Substance: BEMIPARIN
     Indication: PRODUCT USED FOR UNKNOWN INDICATION
     Dosage: 2500 IU, AT 20: 00 HOURS (DINNER)
     Route: 065
  62. ACETYLSALICYLIC ACID [Concomitant]
     Active Substance: ASPIRIN
     Indication: PRODUCT USED FOR UNKNOWN INDICATION
     Dosage: 1000 MG, ONCE DAILY (BREAKFAST)
     Route: 048
  63. PREDNISONE. [Concomitant]
     Active Substance: PREDNISONE
     Dosage: 20 MG, THRICE DAILY (EVERY 6 HOURS)
     Route: 065
  64. OMEPRAZOL [Concomitant]
     Active Substance: OMEPRAZOLE
     Indication: PRODUCT USED FOR UNKNOWN INDICATION
     Dosage: 20 MG, QD (BREAKFAST)
     Route: 048

REACTIONS (8)
  - Cell death [Recovered/Resolved]
  - Hypertension [Recovered/Resolved]
  - Cholestasis [Recovered/Resolved]
  - Orthostatic hypotension [Recovered/Resolved]
  - Pleural effusion [Recovered/Resolved]
  - Headache [Recovered/Resolved]
  - Ascites [Recovered/Resolved]
  - Tremor [Recovered/Resolved]

NARRATIVE: CASE EVENT DATE: 20180111
